FAERS Safety Report 7417404-5 (Version None)
Quarter: 2011Q2

REPORT INFORMATION
  Report Type: 
  Country: None (occurrence: None)
  Receive Date: 20110412
  Receipt Date: 20110412
  Transmission Date: 20111010
  Serious: No
  Sender: FDA-Public Use
  Company Number: None

PATIENT
  Age: 52 Year
  Sex: Male

DRUGS (2)
  1. ALBUMIN (HUMAN) [Suspect]
     Dosage: 100ML ON 4-11
     Dates: start: 20110411, end: 20110411
  2. ALBUMIN (HUMAN) [Suspect]
     Indication: HYPOTENSION
     Dosage: 100ML O 3-26
     Dates: start: 20110326, end: 20110326

REACTIONS (4)
  - ERYTHEMA [None]
  - HYPOAESTHESIA [None]
  - THROAT TIGHTNESS [None]
  - PARAESTHESIA [None]
